FAERS Safety Report 11746560 (Version 1)
Quarter: 2015Q4

REPORT INFORMATION
  Report Type: Spontaneous
  Country: US (occurrence: None)
  Receive Date: 20151116
  Receipt Date: 20151116
  Transmission Date: 20160304
  Serious: Yes (Death)
  Sender: FDA-Public Use
  Company Number: None

PATIENT
  Sex: Male

DRUGS (1)
  1. ELIGARD [Suspect]
     Active Substance: LEUPROLIDE ACETATE
     Indication: PROSTATE CANCER
     Dosage: 45 MG EVERY 6 MONTHS SUBCUTANEOUSLY
     Route: 058
     Dates: start: 20150512, end: 20151011

REACTIONS (4)
  - Metastases to liver [None]
  - Prostate cancer [None]
  - Gastrointestinal haemorrhage [None]
  - Metastases to bone [None]

NARRATIVE: CASE EVENT DATE: 20151011
